FAERS Safety Report 18245903 (Version 1)
Quarter: 2020Q3

REPORT INFORMATION
  Report Type: Spontaneous
  Country: BR (occurrence: BR)
  Receive Date: 20200909
  Receipt Date: 20200909
  Transmission Date: 20201103
  Serious: Yes (Other)
  Sender: FDA-Public Use
  Company Number: BR-APOTEX-2020AP017445

PATIENT
  Age: 32 Year
  Sex: Male

DRUGS (2)
  1. PAXIL CR [Suspect]
     Active Substance: PAROXETINE HYDROCHLORIDE
     Indication: PREMATURE EJACULATION
     Dosage: 1 DF, QD
     Route: 065
     Dates: start: 20200805, end: 20200809
  2. PANTOPRAZOLE [Concomitant]
     Active Substance: PANTOPRAZOLE
     Indication: PRODUCT USED FOR UNKNOWN INDICATION
     Dosage: 20 MG
     Route: 065

REACTIONS (16)
  - Chills [Recovered/Resolved]
  - Product use in unapproved indication [Unknown]
  - Depressed mood [Recovering/Resolving]
  - Nausea [Recovered/Resolved]
  - Therapy interrupted [Unknown]
  - Diarrhoea [Recovered/Resolved]
  - Discomfort [Recovered/Resolved]
  - Dizziness [Recovered/Resolved]
  - Suicidal ideation [Recovering/Resolving]
  - Illness [Recovered/Resolved]
  - Sleep disorder [Recovered/Resolved]
  - Abdominal discomfort [Recovered/Resolved]
  - Hyperhidrosis [Recovered/Resolved]
  - Skin burning sensation [Recovered/Resolved]
  - Feeding disorder [Recovered/Resolved]
  - Product prescribing issue [Unknown]

NARRATIVE: CASE EVENT DATE: 20200806
